FAERS Safety Report 17914107 (Version 1)
Quarter: 2020Q2

REPORT INFORMATION
  Report Type: Spontaneous
  Country: US (occurrence: US)
  Receive Date: 20200618
  Receipt Date: 20200618
  Transmission Date: 20200714
  Serious: No
  Sender: FDA-Public Use
  Company Number: US-ROCHE-2564976

PATIENT
  Sex: Male

DRUGS (2)
  1. XOFLUZA [Suspect]
     Active Substance: BALOXAVIR MARBOXIL
     Indication: INFLUENZA
     Route: 048
  2. ATIVAN [Concomitant]
     Active Substance: LORAZEPAM

REACTIONS (2)
  - Neuralgia [Unknown]
  - Paraesthesia [Unknown]
